FAERS Safety Report 5360524-X (Version None)
Quarter: 2007Q2

REPORT INFORMATION
  Report Type: 
  Country: None (occurrence: None)
  Receive Date: 20070618
  Receipt Date: 20070618
  Transmission Date: 20071010
  Serious: Yes (Other)
  Sender: FDA-Public Use
  Company Number: A0656898A

PATIENT
  Sex: Male

DRUGS (1)
  1. GOODYS COOL ORANGE HEADACHE POWDER [Suspect]
     Indication: HEADACHE

REACTIONS (5)
  - CIRCULATORY COLLAPSE [None]
  - HAEMATEMESIS [None]
  - LOSS OF CONSCIOUSNESS [None]
  - TREMOR [None]
  - ULCER HAEMORRHAGE [None]
